FAERS Safety Report 8909162 (Version 1)
Quarter: 2012Q4

REPORT INFORMATION
  Report Type: 
  Country: DE (occurrence: DE)
  Receive Date: 20121114
  Receipt Date: 20121114
  Transmission Date: 20130627
  Serious: Yes (Other)
  Sender: FDA-Public Use
  Company Number: PHHY2012DE104160

PATIENT
  Age: 78 Year
  Sex: Female

DRUGS (1)
  1. TASIGNA [Suspect]
     Dosage: 600 mg, per day
     Route: 048
     Dates: start: 20111108, end: 20120925

REACTIONS (1)
  - Arterial occlusive disease [Unknown]
